FAERS Safety Report 14714938 (Version 9)
Quarter: 2018Q3

REPORT INFORMATION
  Report Type: Spontaneous
  Country: US (occurrence: US)
  Receive Date: 20180404
  Receipt Date: 20180921
  Transmission Date: 20181010
  Serious: Yes (Hospitalization)
  Sender: FDA-Public Use
  Company Number: US-JNJFOC-20180339584

PATIENT
  Age: 54 Year
  Sex: Male
  Weight: 95.26 kg

DRUGS (14)
  1. RISPERDAL CONSTA [Suspect]
     Active Substance: RISPERIDONE
     Indication: SCHIZOAFFECTIVE DISORDER
     Dosage: PROBABLY TWO YEARS, STOPPED IN 2014 OR 2015
     Route: 030
     Dates: start: 2013, end: 2014
  2. RISPERDAL [Suspect]
     Active Substance: RISPERIDONE
     Indication: PRODUCT USED FOR UNKNOWN INDICATION
     Route: 065
  3. HALDOL DECANOATE [Suspect]
     Active Substance: HALOPERIDOL DECANOATE
     Indication: BIPOLAR DISORDER
     Route: 030
     Dates: start: 2009, end: 2013
  4. DEPAKOTE [Suspect]
     Active Substance: DIVALPROEX SODIUM
     Indication: PRODUCT USED FOR UNKNOWN INDICATION
     Dosage: STOPPED IN 2014 OR 2015
     Route: 065
     Dates: start: 2013
  5. RISPERDAL CONSTA [Suspect]
     Active Substance: RISPERIDONE
     Indication: BIPOLAR DISORDER
     Dosage: PROBABLY TWO YEARS, STOPPED IN 2014 OR 2015
     Route: 030
     Dates: start: 2013, end: 2014
  6. INVEGA SUSTENNA [Suspect]
     Active Substance: PALIPERIDONE PALMITATE
     Indication: SCHIZOAFFECTIVE DISORDER
     Dosage: EVERY 28 DAYS
     Route: 030
     Dates: start: 201710
  7. INVEGA [Suspect]
     Active Substance: PALIPERIDONE
     Indication: SCHIZOAFFECTIVE DISORDER
     Dosage: INITIATED IN 2014 OR 2015
     Route: 048
  8. HALDOL DECANOATE [Suspect]
     Active Substance: HALOPERIDOL DECANOATE
     Indication: SCHIZOAFFECTIVE DISORDER
     Route: 030
     Dates: start: 2009, end: 2013
  9. INVEGA SUSTENNA [Suspect]
     Active Substance: PALIPERIDONE PALMITATE
     Indication: SCHIZOAFFECTIVE DISORDER
     Route: 030
     Dates: start: 20180911
  10. INVEGA SUSTENNA [Suspect]
     Active Substance: PALIPERIDONE PALMITATE
     Indication: BIPOLAR DISORDER
     Route: 030
     Dates: start: 20180911
  11. INVEGA [Suspect]
     Active Substance: PALIPERIDONE
     Indication: BIPOLAR DISORDER
     Dosage: INITIATED IN 2014 OR 2015
     Route: 048
  12. INVEGA SUSTENNA [Suspect]
     Active Substance: PALIPERIDONE PALMITATE
     Indication: SCHIZOAFFECTIVE DISORDER
     Dosage: EVERY 28 DAYS, INITIATED IN OCT?2014 OR OCT?2015
     Route: 030
     Dates: end: 2017
  13. INVEGA SUSTENNA [Suspect]
     Active Substance: PALIPERIDONE PALMITATE
     Indication: BIPOLAR DISORDER
     Dosage: EVERY 28 DAYS, INITIATED IN OCT?2014 OR OCT?2015
     Route: 030
     Dates: end: 2017
  14. INVEGA SUSTENNA [Suspect]
     Active Substance: PALIPERIDONE PALMITATE
     Indication: BIPOLAR DISORDER
     Dosage: EVERY 28 DAYS
     Route: 030
     Dates: start: 201710

REACTIONS (29)
  - Hospitalisation [Unknown]
  - Scar [Unknown]
  - Hypoaesthesia [Not Recovered/Not Resolved]
  - Insomnia [Unknown]
  - Depression [Unknown]
  - Asthenia [Not Recovered/Not Resolved]
  - Dysarthria [Not Recovered/Not Resolved]
  - Unevaluable event [Not Recovered/Not Resolved]
  - Drug ineffective [Unknown]
  - Adverse drug reaction [Not Recovered/Not Resolved]
  - Dry eye [Not Recovered/Not Resolved]
  - Nerve injury [Unknown]
  - Swollen tongue [Not Recovered/Not Resolved]
  - Abnormal behaviour [Unknown]
  - Irritability [Unknown]
  - Paranoia [Not Recovered/Not Resolved]
  - Muscle spasms [Not Recovered/Not Resolved]
  - Suicidal ideation [Recovered/Resolved]
  - Hypokinesia [Unknown]
  - Muscle twitching [Unknown]
  - Dry mouth [Not Recovered/Not Resolved]
  - Headache [Not Recovered/Not Resolved]
  - Prescribed overdose [Unknown]
  - Vomiting [Unknown]
  - Dissociation [Not Recovered/Not Resolved]
  - Hypoaesthesia oral [Not Recovered/Not Resolved]
  - Vision blurred [Not Recovered/Not Resolved]
  - Swelling [Not Recovered/Not Resolved]
  - Injection site pain [Not Recovered/Not Resolved]

NARRATIVE: CASE EVENT DATE: 201310
